FAERS Safety Report 9342827 (Version 3)
Quarter: 2013Q4

REPORT INFORMATION
  Report Type: Report from Study
  Country: JP (occurrence: JP)
  Receive Date: 20130611
  Receipt Date: 20131226
  Transmission Date: 20140711
  Serious: Yes (Hospitalization, Other)
  Sender: FDA-Public Use
  Company Number: JP-AMGEN-JPNCT2013040787

PATIENT
  Age: 77 Year
  Sex: Female
  Weight: 37 kg

DRUGS (10)
  1. DARBEPOETIN ALFA [Suspect]
     Indication: NEPHROGENIC ANAEMIA
     Dosage: 60 MUG, Q4WK
     Route: 058
     Dates: start: 20101122, end: 20110314
  2. DARBEPOETIN ALFA [Suspect]
     Dosage: 60 MUG, Q2WK
     Route: 058
     Dates: start: 20110328, end: 20110411
  3. DARBEPOETIN ALFA [Suspect]
     Dosage: 60 MUG, Q4WK
     Route: 058
     Dates: start: 20110509, end: 20111219
  4. DARBEPOETIN ALFA [Suspect]
     Dosage: 60 MUG, QD
     Route: 058
     Dates: start: 20111226, end: 20111226
  5. DARBEPOETIN ALFA [Suspect]
     Dosage: 60 MUG, QD
     Route: 058
     Dates: start: 20120105, end: 20120105
  6. ARGAMATE [Concomitant]
     Dosage: UNK
     Route: 048
  7. CHARCOAL [Concomitant]
     Indication: NEPHROSCLEROSIS
     Dosage: UNK
     Route: 048
  8. FUROSEMIDE [Concomitant]
     Dosage: UNK
     Route: 048
  9. FLUITRAN [Concomitant]
     Dosage: UNK
     Route: 048
  10. SPHERICAL ABSORBENT COAL [Concomitant]
     Indication: NEPHROSCLEROSIS
     Dosage: UNK
     Route: 048

REACTIONS (2)
  - Cardiac failure [Recovered/Resolved]
  - Cardiac failure congestive [Recovered/Resolved]
